FAERS Safety Report 17072885 (Version 3)
Quarter: 2020Q1

REPORT INFORMATION
  Report Type: Spontaneous
  Country: IT (occurrence: IT)
  Receive Date: 20191125
  Receipt Date: 20200218
  Transmission Date: 20200409
  Serious: Yes (Other)
  Sender: FDA-Public Use
  Company Number: IT-MYLANLABS-2019M1113177

PATIENT
  Age: 64 Year
  Sex: Female

DRUGS (1)
  1. DONEPEZIL. [Suspect]
     Active Substance: DONEPEZIL
     Indication: DEMENTIA ALZHEIMER^S TYPE
     Dosage: UNK
     Route: 048

REACTIONS (2)
  - Dementia [Recovered/Resolved with Sequelae]
  - Drug ineffective [Recovered/Resolved with Sequelae]
